FAERS Safety Report 4622517-7 (Version None)
Quarter: 2005Q1

REPORT INFORMATION
  Report Type: 
  Country: None (occurrence: None)
  Receive Date: 20050317
  Receipt Date: 20040519
  Transmission Date: 20050727
  Serious: Yes (Other)
  Sender: FDA-Public Use
  Company Number: PHEH2004US05573

PATIENT
  Age: 40 Year
  Sex: Male

DRUGS (2)
  1. TRILEPTAL [Suspect]
     Indication: EPILEPSY
     Dosage: BID, ORAL
     Route: 048
  2. DIURETICS (NO INGREDIENTS/SUBSTANCES) [Suspect]
     Indication: HYPERTENSION

REACTIONS (1)
  - HYPONATRAEMIA [None]
